FAERS Safety Report 8022353-8 (Version None)
Quarter: 2012Q1

REPORT INFORMATION
  Report Type: 
  Country: None (occurrence: None)
  Receive Date: 20120104
  Receipt Date: 20111226
  Transmission Date: 20120608
  Serious: Yes (Other)
  Sender: FDA-Public Use
  Company Number: IT-ROCHE-793416

PATIENT
  Age: 14 Year
  Sex: Female

DRUGS (4)
  1. SUNITINIB MALATE [Suspect]
     Indication: METASTATIC RENAL CELL CARCINOMA
     Dosage: FOR 4 WEEKS WITH A 2-WEEK REST PERIOD TEMPORARILY WITHHELD
     Route: 048
  2. SUNITINIB MALATE [Suspect]
     Route: 048
  3. PEG-INTRON [Concomitant]
     Indication: RENAL CELL CARCINOMA
     Route: 058
  4. AVASTIN [Suspect]
     Indication: METASTATIC RENAL CELL CARCINOMA
     Dosage: EVERY OTHER WEEK
     Route: 042

REACTIONS (3)
  - HYPOTHYROIDISM [None]
  - PROTEINURIA [None]
  - HYPERTENSION [None]
